FAERS Safety Report 25198049 (Version 1)
Quarter: 2025Q2

REPORT INFORMATION
  Report Type: Spontaneous
  Country: US (occurrence: None)
  Receive Date: 20250414
  Receipt Date: 20250414
  Transmission Date: 20250716
  Serious: Yes (Hospitalization, Other)
  Sender: FDA-CTU
  Company Number: None

PATIENT
  Age: 87 Year
  Sex: Male
  Weight: 99.45 kg

DRUGS (1)
  1. KISUNLA [Suspect]
     Active Substance: DONANEMAB-AZBT
     Indication: Dementia Alzheimer^s type
     Route: 042
     Dates: start: 20250317, end: 20250414

REACTIONS (10)
  - Secretion discharge [None]
  - Infusion related reaction [None]
  - Eye movement disorder [None]
  - Somnolence [None]
  - Incontinence [None]
  - Agonal respiration [None]
  - Blood pressure decreased [None]
  - Postictal state [None]
  - Nausea [None]
  - Vomiting [None]

NARRATIVE: CASE EVENT DATE: 20250414
